FAERS Safety Report 5983082-5 (Version None)
Quarter: 2008Q4

REPORT INFORMATION
  Report Type: 
  Country: None (occurrence: None)
  Receive Date: 20081208
  Receipt Date: 20081201
  Transmission Date: 20090506
  Serious: Yes (Hospitalization, Other)
  Sender: FDA-Public Use
  Company Number: JP-ABBOTT-08P-087-0477462-00

PATIENT
  Sex: Male
  Weight: 59.6 kg

DRUGS (4)
  1. KLARICID TABLETS [Suspect]
     Indication: HELICOBACTER INFECTION
     Route: 048
     Dates: start: 20070908, end: 20070911
  2. RABEPRAZOLE SODIUM [Suspect]
     Indication: HELICOBACTER INFECTION
     Route: 048
     Dates: start: 20070908, end: 20070911
  3. AMOXICILLIN [Suspect]
     Indication: HELICOBACTER INFECTION
     Route: 048
     Dates: start: 20070908, end: 20070911
  4. STREPTOCOCCUS FAECALIS [Concomitant]
     Indication: HELICOBACTER INFECTION
     Route: 048
     Dates: start: 20070908, end: 20070911

REACTIONS (1)
  - ENTEROCOLITIS HAEMORRHAGIC [None]
